FAERS Safety Report 5681061-9 (Version None)
Quarter: 2008Q1

REPORT INFORMATION
  Report Type: 
  Country: None (occurrence: None)
  Receive Date: 20080325
  Receipt Date: 20080314
  Transmission Date: 20080703
  Serious: Yes (Hospitalization)
  Sender: FDA-Public Use
  Company Number: 2008BI001184

PATIENT
  Age: 46 Year
  Sex: Female

DRUGS (2)
  1. AVONEX [Suspect]
     Indication: MULTIPLE SCLEROSIS
     Dosage: 30 UG QW IM
     Route: 030
  2. ALLERGY MEDICATIONS (NOS) [Concomitant]

REACTIONS (4)
  - FALL [None]
  - FATIGUE [None]
  - FIBULA FRACTURE [None]
  - WEIGHT DECREASED [None]
